FAERS Safety Report 6732288-6 (Version None)
Quarter: 2010Q2

REPORT INFORMATION
  Report Type: 
  Country: None (occurrence: None)
  Receive Date: 20100519
  Receipt Date: 20100514
  Transmission Date: 20101027
  Serious: Yes (Life-Threatening)
  Sender: FDA-Public Use
  Company Number: B0653360A

PATIENT
  Sex: Female
  Weight: 40 kg

DRUGS (2)
  1. COMBIVIR [Suspect]
     Indication: PROPHYLAXIS AGAINST HIV INFECTION
     Route: 048
     Dates: start: 20090309, end: 20100512
  2. EFAVIRENZ [Suspect]
     Indication: PROPHYLAXIS AGAINST HIV INFECTION
     Dosage: 600MG PER DAY
     Route: 048
     Dates: start: 20090309, end: 20090512

REACTIONS (4)
  - MALARIA [None]
  - NEUTROPHIL COUNT DECREASED [None]
  - PAIN [None]
  - PYREXIA [None]
